FAERS Safety Report 12708072 (Version 1)
Quarter: 2016Q3

REPORT INFORMATION
  Report Type: Spontaneous
  Country: US (occurrence: US)
  Receive Date: 20160901
  Receipt Date: 20160901
  Transmission Date: 20161109
  Serious: No
  Sender: FDA-Public Use
  Company Number: US-SHIRE-US201611297

PATIENT

DRUGS (2)
  1. LIALDA [Suspect]
     Active Substance: MESALAMINE
     Indication: PRODUCT USED FOR UNKNOWN INDICATION
     Dosage: 4.8 G, (FOUR 1.2 G PILLS) UNK
     Route: 048
  2. LIALDA [Suspect]
     Active Substance: MESALAMINE
     Dosage: 2.4 G, (TWO 1.2 G PILLS) UNKNOWN
     Route: 048

REACTIONS (2)
  - Eye colour change [Unknown]
  - Skin odour abnormal [Unknown]
